FAERS Safety Report 9972396 (Version 1)
Quarter: 2014Q1

REPORT INFORMATION
  Report Type: Report from Study
  Country: US (occurrence: US)
  Receive Date: 20140306
  Receipt Date: 20140306
  Transmission Date: 20141002
  Serious: No
  Sender: FDA-Public Use
  Company Number: US-ABBVIE-13P-163-1148806-00

PATIENT
  Age: 43 Year
  Sex: Female

DRUGS (6)
  1. HUMIRA [Suspect]
     Indication: CROHN^S DISEASE
     Dosage: 160MG -FOUR 40 MG INJECTIONS 09/12/13
     Dates: start: 20130912
  2. METHOTREXATE [Concomitant]
     Indication: CROHN^S DISEASE
     Dosage: 5 TABLETS ONCE A WEEK
  3. BIRTH CONTROL PILLS [Concomitant]
     Indication: PRODUCT USED FOR UNKNOWN INDICATION
  4. B 12 [Concomitant]
     Indication: PRODUCT USED FOR UNKNOWN INDICATION
     Dosage: JUST STARTED (NOT SURE OFTEN THEY WILL BE)
  5. IRON [Concomitant]
     Indication: HYPOCHROMIC ANAEMIA
  6. FOLIC ACID [Concomitant]
     Indication: PRODUCT USED FOR UNKNOWN INDICATION

REACTIONS (1)
  - Injection site pain [Recovered/Resolved]
